FAERS Safety Report 4724872-6 (Version None)
Quarter: 2005Q3

REPORT INFORMATION
  Report Type: 
  Country: None (occurrence: None)
  Receive Date: 20050721
  Receipt Date: 20050708
  Transmission Date: 20060218
  Serious: Yes (Disabling)
  Sender: FDA-Public Use
  Company Number: SEWYE802906JUL05

PATIENT
  Age: 48 Year
  Sex: Female

DRUGS (18)
  1. EFFEXOR [Suspect]
     Indication: ALCOHOLISM
     Dosage: 75 + 150 + 225 + 150 MG PER DAY
     Dates: start: 20050530, end: 20050602
  2. EFFEXOR [Suspect]
     Indication: BIPOLAR I DISORDER
     Dosage: 75 + 150 + 225 + 150 MG PER DAY
     Dates: start: 20050530, end: 20050602
  3. EFFEXOR [Suspect]
     Indication: PERSONALITY DISORDER
     Dosage: 75 + 150 + 225 + 150 MG PER DAY
     Dates: start: 20050530, end: 20050602
  4. EFFEXOR [Suspect]
     Indication: ALCOHOLISM
     Dosage: 75 + 150 + 225 + 150 MG PER DAY
     Dates: start: 20050602, end: 20050606
  5. EFFEXOR [Suspect]
     Indication: BIPOLAR I DISORDER
     Dosage: 75 + 150 + 225 + 150 MG PER DAY
     Dates: start: 20050602, end: 20050606
  6. EFFEXOR [Suspect]
     Indication: PERSONALITY DISORDER
     Dosage: 75 + 150 + 225 + 150 MG PER DAY
     Dates: start: 20050602, end: 20050606
  7. EFFEXOR [Suspect]
     Indication: ALCOHOLISM
     Dosage: 75 + 150 + 225 + 150 MG PER DAY
     Dates: start: 20050606, end: 20050613
  8. EFFEXOR [Suspect]
     Indication: BIPOLAR I DISORDER
     Dosage: 75 + 150 + 225 + 150 MG PER DAY
     Dates: start: 20050606, end: 20050613
  9. EFFEXOR [Suspect]
     Indication: PERSONALITY DISORDER
     Dosage: 75 + 150 + 225 + 150 MG PER DAY
     Dates: start: 20050606, end: 20050613
  10. EFFEXOR [Suspect]
     Indication: ALCOHOLISM
     Dosage: 75 + 150 + 225 + 150 MG PER DAY
     Dates: start: 20050613, end: 20050614
  11. EFFEXOR [Suspect]
     Indication: BIPOLAR I DISORDER
     Dosage: 75 + 150 + 225 + 150 MG PER DAY
     Dates: start: 20050613, end: 20050614
  12. EFFEXOR [Suspect]
     Indication: PERSONALITY DISORDER
     Dosage: 75 + 150 + 225 + 150 MG PER DAY
     Dates: start: 20050613, end: 20050614
  13. OXAZEPAM [Concomitant]
  14. TENOX (TEMAZEPAM) [Concomitant]
  15. TEVETEN [Concomitant]
  16. ENALAPRIL MALEATE [Concomitant]
  17. PAROXETINE HCL [Concomitant]
  18. REMERON [Concomitant]

REACTIONS (10)
  - ABDOMINAL DISTENSION [None]
  - ABDOMINAL PAIN [None]
  - ABNORMAL BEHAVIOUR [None]
  - ANOSMIA [None]
  - CEREBELLAR ATROPHY [None]
  - CRYING [None]
  - DEPRESSION [None]
  - FEAR [None]
  - POSITIVE ROMBERGISM [None]
  - SUICIDAL IDEATION [None]
